FAERS Safety Report 8776179 (Version 2)
Quarter: 2012Q4

REPORT INFORMATION
  Report Type: 
  Country: US (occurrence: US)
  Receive Date: 20120910
  Receipt Date: 20120910
  Transmission Date: 20130627
  Serious: Yes (Hospitalization, Other)
  Sender: FDA-Public Use
  Company Number: US-009507513-1202USA03875

PATIENT

DRUGS (11)
  1. FOSAMAX [Suspect]
     Indication: OSTEOPENIA
     Dosage: 70 mg, QW
     Route: 048
     Dates: start: 200202
  2. FOSAMAX [Suspect]
     Indication: OSTEOPOROSIS
  3. SYNTHROID [Concomitant]
     Indication: HYPOTHYROIDISM
  4. LOTREL [Concomitant]
     Indication: HYPERTENSION
  5. FOSAMAX [Suspect]
     Indication: OSTEOPENIA
     Dosage: 70 mg, QW
     Route: 048
     Dates: start: 20090225, end: 20100530
  6. FOSAMAX [Suspect]
     Indication: OSTEOPOROSIS
  7. FOSAMAX D [Suspect]
     Indication: OSTEOPOROSIS
     Dosage: 70mg/2800
     Route: 048
     Dates: start: 20070726
  8. FOSAMAX PLUS D [Suspect]
     Indication: OSTEOPENIA
  9. PREMARIN [Concomitant]
     Dates: start: 1974
  10. ACTONEL [Suspect]
     Dates: start: 20031205
  11. BONIVA [Suspect]

REACTIONS (24)
  - Femur fracture [Recovering/Resolving]
  - Device failure [Unknown]
  - Osteoarthritis [Unknown]
  - Bursitis [Unknown]
  - Arthritis [Unknown]
  - Tendonitis [Unknown]
  - Abdominal pain [Unknown]
  - Fall [Unknown]
  - Osteonecrosis [Unknown]
  - Type 2 diabetes mellitus [Unknown]
  - Cystocele [Unknown]
  - Cerumen impaction [Unknown]
  - Urinary incontinence [Unknown]
  - Oedema peripheral [Unknown]
  - Alopecia [Unknown]
  - Hypertrichosis [Unknown]
  - Increased tendency to bruise [Unknown]
  - Fall [Unknown]
  - Rib fracture [Unknown]
  - Pubis fracture [Unknown]
  - Gait disturbance [Unknown]
  - Activities of daily living impaired [Unknown]
  - Muscle atrophy [Unknown]
  - Anaemia postoperative [Unknown]
